FAERS Safety Report 5427109-8 (Version None)
Quarter: 2007Q3

REPORT INFORMATION
  Report Type: 
  Country: None (occurrence: None)
  Receive Date: 20070823
  Receipt Date: 20070823
  Transmission Date: 20080115
  Serious: Yes (Life-Threatening)
  Sender: FDA-Public Use
  Company Number: None

PATIENT
  Age: 58 Year
  Sex: Male
  Weight: 110.3 kg

DRUGS (11)
  1. NAFCILLIN SODIUM [Suspect]
     Indication: INFECTION
     Dosage: 2 GRAM IV EVERY 4 HOUR
     Route: 042
     Dates: start: 20060821, end: 20060906
  2. M.V.I. [Concomitant]
  3. FENTANYL [Concomitant]
  4. ESCITALOPRAM OXALATE [Concomitant]
  5. INSULIN [Concomitant]
  6. ROSUVASTATIN [Concomitant]
  7. PREDNISONE [Concomitant]
  8. TACROLIMUS [Concomitant]
  9. EXENATIDE [Concomitant]
  10. MYCOPHENOLATE MOFETIL [Concomitant]
  11. RANITIDINE [Concomitant]

REACTIONS (2)
  - DYSPNOEA [None]
  - HAEMOGLOBIN DECREASED [None]
